FAERS Safety Report 6757582-4 (Version None)
Quarter: 2010Q2

REPORT INFORMATION
  Report Type: 
  Country: None (occurrence: None)
  Receive Date: 20100607
  Receipt Date: 20100529
  Transmission Date: 20101027
  Serious: Yes (Death, Other)
  Sender: FDA-Public Use
  Company Number: ES-CELGENEUS-144-50794-10052036

PATIENT
  Sex: Male

DRUGS (5)
  1. VIDAZA [Suspect]
     Route: 050
     Dates: start: 20081113
  2. VIDAZA [Suspect]
  3. RED BLOOD CELLS [Concomitant]
     Dosage: 2 TRANSFUSIONS PER MONTH
     Route: 065
     Dates: start: 20070516
  4. NEORECORMON [Concomitant]
     Route: 065
     Dates: start: 20080225, end: 20080711
  5. NEUPOGEN [Concomitant]
     Indication: NEUTROPENIA
     Route: 065

REACTIONS (2)
  - CHRONIC MYELOID LEUKAEMIA [None]
  - NEUTROPHIL COUNT DECREASED [None]
